FAERS Safety Report 4652237-4 (Version None)
Quarter: 2005Q2

REPORT INFORMATION
  Report Type: 
  Country: None (occurrence: None)
  Receive Date: 20050502
  Receipt Date: 20050417
  Transmission Date: 20051028
  Serious: Yes (Hospitalization, Other)
  Sender: FDA-Public Use
  Company Number: 2005062203

PATIENT
  Age: 18 Year
  Sex: Female
  Weight: 54.4316 kg

DRUGS (4)
  1. DEPO-PROVERA SUSPENSION, STERILE (MEDROXYPROGESTERONE ACEATE) [Suspect]
     Indication: CONTRACEPTION
     Dosage: SEE IMAGE, INTRAMUSCULAR
     Route: 030
     Dates: start: 20031101, end: 20031101
  2. DEPO-PROVERA SUSPENSION, STERILE (MEDROXYPROGESTERONE ACEATE) [Suspect]
     Indication: DYSMENORRHOEA
     Dosage: SEE IMAGE, INTRAMUSCULAR
     Route: 030
     Dates: start: 20031101, end: 20031101
  3. DEPO-PROVERA SUSPENSION, STERILE (MEDROXYPROGESTERONE ACEATE) [Suspect]
     Indication: MENORRHAGIA
     Dosage: SEE IMAGE, INTRAMUSCULAR
     Route: 030
     Dates: start: 20031101, end: 20031101
  4. METRONIDAZOLE [Suspect]
     Indication: ILL-DEFINED DISORDER
     Dosage: (25 MG)

REACTIONS (8)
  - DIZZINESS [None]
  - DRUG INTERACTION [None]
  - EUPHORIC MOOD [None]
  - HAEMORRHAGE [None]
  - PARAESTHESIA [None]
  - POST-TRAUMATIC STRESS DISORDER [None]
  - RETCHING [None]
  - TREMOR [None]
